FAERS Safety Report 6858354-2 (Version None)
Quarter: 2010Q3

REPORT INFORMATION
  Report Type: 
  Country: None (occurrence: None)
  Receive Date: 20100719
  Receipt Date: 20080605
  Transmission Date: 20110219
  Serious: No
  Sender: FDA-Public Use
  Company Number: US-PFIZER INC-2008010880

PATIENT
  Sex: Male
  Weight: 98.181 kg

DRUGS (12)
  1. CHANTIX [Suspect]
     Indication: SMOKING CESSATION THERAPY
     Route: 048
     Dates: start: 20080101, end: 20080111
  2. METOPROLOL [Concomitant]
  3. METFORMIN HCL [Concomitant]
  4. PROTONIX [Concomitant]
  5. FUROSEMIDE [Concomitant]
  6. CRESTOR [Concomitant]
  7. TRAZODONE HYDROCHLORIDE [Concomitant]
  8. HYDROCODONE [Concomitant]
  9. SPIRIVA [Concomitant]
     Route: 055
  10. ALBUTEROL [Concomitant]
     Route: 055
  11. PROCARDIA [Concomitant]
  12. VITAMINS [Concomitant]

REACTIONS (2)
  - DEPRESSION [None]
  - TOBACCO USER [None]
